FAERS Safety Report 19142130 (Version 6)
Quarter: 2022Q1

REPORT INFORMATION
  Report Type: Report from Study
  Country: CA (occurrence: CA)
  Receive Date: 20210416
  Receipt Date: 20220215
  Transmission Date: 20220424
  Serious: Yes (Other)
  Sender: FDA-Public Use
  Company Number: CA-BAUSCH-BL-2021-012758

PATIENT
  Age: 78 Year
  Sex: Male

DRUGS (3)
  1. SILIQ [Suspect]
     Active Substance: BRODALUMAB
     Indication: Psoriasis
     Dosage: STRENGTH: 210 MG/1.5 ML
     Route: 058
     Dates: start: 20201214
  2. SILIQ [Suspect]
     Active Substance: BRODALUMAB
     Dosage: STRENGTH: 210 MG/1.5 ML
     Route: 058
     Dates: start: 2021, end: 2021
  3. SILIQ [Suspect]
     Active Substance: BRODALUMAB
     Dosage: STRENGTH: 210 MG/1.5 ML, OFF LABEL- MONTHLY
     Route: 058
     Dates: start: 2021, end: 20211225

REACTIONS (2)
  - Arthropathy [Recovering/Resolving]
  - Arthralgia [Recovering/Resolving]
